FAERS Safety Report 9869199 (Version 2)
Quarter: 2014Q1

REPORT INFORMATION
  Report Type: Report from Study
  Country: CO (occurrence: CO)
  Receive Date: 20140205
  Receipt Date: 20140212
  Transmission Date: 20141002
  Serious: Yes (Hospitalization, Other)
  Sender: FDA-Public Use
  Company Number: CO-ROCHE-1343448

PATIENT
  Age: 57 Year
  Sex: Female
  Weight: 87 kg

DRUGS (4)
  1. LUCENTIS [Suspect]
     Indication: VENOUS OCCLUSION
     Route: 050
     Dates: end: 201310
  2. INSULIN [Concomitant]
  3. METFORMIN [Concomitant]
     Route: 065
  4. OMEPRAZOLE [Concomitant]

REACTIONS (4)
  - Urinary tract infection [Recovered/Resolved]
  - Eye haemorrhage [Not Recovered/Not Resolved]
  - Retinal detachment [Unknown]
  - Visual impairment [Unknown]
